FAERS Safety Report 18166502 (Version 2)
Quarter: 2020Q3

REPORT INFORMATION
  Report Type: Spontaneous
  Country: JP (occurrence: JP)
  Receive Date: 20200819
  Receipt Date: 20200826
  Transmission Date: 20201103
  Serious: Yes (Life-Threatening, Hospitalization, Other)
  Sender: FDA-Public Use
  Company Number: JP-BAXTER-2020BAX016721

PATIENT
  Age: 49 Year
  Sex: Male

DRUGS (10)
  1. DOXIL [Suspect]
     Active Substance: DOXORUBICIN HYDROCHLORIDE
     Dosage: THE TOTAL DOSE OF ANTHRACYCLINE ANTIBIOTICS WAS 250MG/M2; CYCLICAL
     Route: 065
  2. BLEOMYCIN [Suspect]
     Active Substance: BLEOMYCIN SULFATE
     Indication: NON-HODGKIN^S LYMPHOMA
     Dosage: CYCLICAL
     Route: 065
  3. CYCLOPHOSPHAMIDE. [Suspect]
     Active Substance: CYCLOPHOSPHAMIDE
     Indication: NON-HODGKIN^S LYMPHOMA
     Dosage: CYCLICAL
     Route: 065
  4. DOXORUBICIN HYDROCHLORIDE. [Suspect]
     Active Substance: DOXORUBICIN HYDROCHLORIDE
     Indication: NON-HODGKIN^S LYMPHOMA
     Dosage: THE TOTAL DOSE OF ANTHRACYCLINE ANTIBIOTICS WAS 250MG/M2; CYCLICAL
     Route: 065
  5. DACARBAZINE. [Suspect]
     Active Substance: DACARBAZINE
     Indication: NON-HODGKIN^S LYMPHOMA
     Dosage: CYCLICAL
     Route: 065
  6. VINCRISTINE [Suspect]
     Active Substance: VINCRISTINE
     Indication: NON-HODGKIN^S LYMPHOMA
     Dosage: CYCLICAL
     Route: 065
  7. PREDNISONE. [Suspect]
     Active Substance: PREDNISONE
     Indication: NON-HODGKIN^S LYMPHOMA
     Dosage: CYCLICAL
     Route: 065
  8. DOXIL [Suspect]
     Active Substance: DOXORUBICIN HYDROCHLORIDE
     Indication: NON-HODGKIN^S LYMPHOMA
     Dosage: THE TOTAL DOSE OF ANTHRACYCLINE ANTIBIOTICS WAS 250MG/M2; CYCLICAL
     Route: 065
  9. DOXORUBICIN HYDROCHLORIDE. [Suspect]
     Active Substance: DOXORUBICIN HYDROCHLORIDE
     Dosage: THE TOTAL DOSE OF ANTHRACYCLINE ANTIBIOTICS WAS 250MG/M2; CYCLICAL
     Route: 065
  10. VINBLASTINE [Suspect]
     Active Substance: VINBLASTINE
     Indication: NON-HODGKIN^S LYMPHOMA
     Dosage: CYCLICAL
     Route: 065

REACTIONS (9)
  - Cardiomyopathy [Recovered/Resolved]
  - Myocardial fibrosis [Recovered/Resolved]
  - Pulmonary congestion [Recovered/Resolved]
  - Congestive cardiomyopathy [Recovered/Resolved]
  - Hypertension [Recovered/Resolved]
  - Mitral valve incompetence [Recovered/Resolved]
  - Hypokinesia [Recovered/Resolved]
  - Sinus tachycardia [Recovered/Resolved]
  - Cardiac failure acute [Recovered/Resolved]
